FAERS Safety Report 13914350 (Version 4)
Quarter: 2018Q2

REPORT INFORMATION
  Report Type: Spontaneous
  Country: US (occurrence: US)
  Receive Date: 20170829
  Receipt Date: 20180427
  Transmission Date: 20180711
  Serious: No
  Sender: FDA-Public Use
  Company Number: US-PFIZER INC-2017370063

PATIENT
  Age: 68 Year
  Sex: Female

DRUGS (1)
  1. IBRANCE [Suspect]
     Active Substance: PALBOCICLIB
     Indication: BREAST CANCER FEMALE
     Dosage: 125 MG, CYCLIC, (TAKE 1 CAPSULE BY MOUTH EVERY DAY FOR 21 DAYS ON, 7 DAYS OFF REPEAT)
     Route: 048
     Dates: start: 201707

REACTIONS (8)
  - Adnexa uteri pain [Unknown]
  - Glucose tolerance impaired [Unknown]
  - Fatigue [Unknown]
  - Dry skin [Unknown]
  - Blood glucose decreased [Unknown]
  - Burning sensation [Unknown]
  - Nausea [Unknown]
  - Feeling abnormal [Unknown]

NARRATIVE: CASE EVENT DATE: 2017
